FAERS Safety Report 5829591-0 (Version None)
Quarter: 2008Q3

REPORT INFORMATION
  Report Type: 
  Country: None (occurrence: None)
  Receive Date: 20080731
  Receipt Date: 20080721
  Transmission Date: 20090109
  Serious: Yes (Other)
  Sender: FDA-Public Use
  Company Number: US-PFIZER INC-2008060652

PATIENT

DRUGS (2)
  1. CELEBREX [Suspect]
  2. ACCUPRIL [Suspect]

REACTIONS (2)
  - ANAPHYLACTIC SHOCK [None]
  - ILL-DEFINED DISORDER [None]
